FAERS Safety Report 7267285-8 (Version None)
Quarter: 2011Q1

REPORT INFORMATION
  Report Type: 
  Country: None (occurrence: None)
  Receive Date: 20110201
  Receipt Date: 20110125
  Transmission Date: 20110831
  Serious: Yes (Other)
  Sender: FDA-Public Use
  Company Number: US-SANOFI-AVENTIS-2010SA070711

PATIENT
  Age: 70 Year
  Sex: Male
  Weight: 88.45 kg

DRUGS (21)
  1. ROSUVASTATIN CALCIUM [Concomitant]
  2. CRESTOR [Concomitant]
  3. FLAXSEED OIL [Concomitant]
  4. MSM [Concomitant]
  5. MULTAQ [Suspect]
     Indication: ATRIAL FLUTTER
     Route: 048
     Dates: start: 20100501
  6. VALSARTAN [Concomitant]
  7. AMIODARONE [Concomitant]
  8. CARVEDILOL [Concomitant]
  9. ZANTAC [Concomitant]
  10. GLUCOSAMINE [Concomitant]
  11. WARFARIN [Concomitant]
     Dosage: EVERY MONDAY, WEDNESDAY + FRIDAY
  12. COQ10 [Concomitant]
  13. MULTAQ [Suspect]
     Indication: ATRIAL FIBRILLATION
     Route: 048
     Dates: start: 20100501
  14. ALDACTONE [Concomitant]
  15. FISH OIL [Concomitant]
  16. PLAVIX [Concomitant]
     Indication: CORONARY ARTERY DISEASE
  17. DIOVANE [Concomitant]
  18. GARLIC [Concomitant]
  19. WARFARIN [Concomitant]
     Dosage: SATURDAY, SUNDAY, TUESDAY AND THURSDAY.
  20. MULTIVITAMIN [Concomitant]
  21. ALL OTHER THERAPEUTIC PRODUCTS [Concomitant]
     Dates: start: 20101022

REACTIONS (1)
  - TORSADE DE POINTES [None]
